FAERS Safety Report 24129272 (Version 1)
Quarter: 2024Q3

REPORT INFORMATION
  Report Type: Report from Study
  Country: US (occurrence: US)
  Receive Date: 20240723
  Receipt Date: 20240723
  Transmission Date: 20241016
  Serious: Yes (Other)
  Sender: GILEAD
  Company Number: US-GILEAD-2024-0681112

PATIENT
  Sex: Male

DRUGS (1)
  1. EMTRICITABINE\TENOFOVIR [Suspect]
     Active Substance: EMTRICITABINE\TENOFOVIR
     Indication: Prophylaxis against HIV infection
     Dosage: 225 MG, QD
     Route: 048

REACTIONS (4)
  - Pneumonia [Unknown]
  - COVID-19 [Unknown]
  - Post-acute COVID-19 syndrome [Unknown]
  - Asthma [Unknown]
